FAERS Safety Report 12309726 (Version 1)
Quarter: 2016Q2

REPORT INFORMATION
  Report Type: Spontaneous
  Country: US (occurrence: None)
  Receive Date: 20160426
  Receipt Date: 20160426
  Transmission Date: 20160815
  Serious: No
  Sender: FDA-Public Use
  Company Number: None

PATIENT
  Age: 74 Year
  Sex: Male
  Weight: 87.3 kg

DRUGS (6)
  1. CYCLOPHOSPHAMIDE. [Suspect]
     Active Substance: CYCLOPHOSPHAMIDE
     Dates: end: 20160405
  2. DOXORUBICIN HYDROCHLORIDE. [Suspect]
     Active Substance: DOXORUBICIN HYDROCHLORIDE
     Dates: end: 20160403
  3. PREDNISONE. [Suspect]
     Active Substance: PREDNISONE
     Dates: end: 20160404
  4. ETOPOSIDE (VP-16) [Suspect]
     Active Substance: ETOPOSIDE
     Dates: end: 20160403
  5. RITUXIMAB (MOAB C2B8 ANTI CD20, CHIMERIC) [Suspect]
     Active Substance: RITUXIMAB
     Dates: end: 20160330
  6. METHOTREXATE [Concomitant]
     Active Substance: METHOTREXATE
     Dates: end: 20160330

REACTIONS (4)
  - Subdural haematoma [None]
  - Dyspnoea [None]
  - Tachycardia [None]
  - Subdural haemorrhage [None]

NARRATIVE: CASE EVENT DATE: 20160410
